FAERS Safety Report 10078945 (Version 1)
Quarter: 2014Q2

REPORT INFORMATION
  Report Type: Spontaneous
  Country: CH (occurrence: None)
  Receive Date: 20140411
  Receipt Date: 20140411
  Transmission Date: 20141212
  Serious: Yes (Death, Hospitalization)
  Sender: FDA-Public Use
  Company Number: 2014CH003158

PATIENT
  Age: 44 Year
  Sex: Female
  Weight: 69 kg

DRUGS (5)
  1. ICLUSIG [Suspect]
     Indication: ACUTE LYMPHOCYTIC LEUKAEMIA
     Route: 048
     Dates: start: 20140314, end: 20140331
  2. ICLUSIG [Suspect]
     Indication: CHROMOSOME ANALYSIS ABNORMAL
     Route: 048
     Dates: start: 20140314, end: 20140331
  3. PANTOPRAZOL (PANTOPRAZOLE SODIUM SESQUIHYDRATE) [Concomitant]
  4. AMBISOME (AMPHOTERICIN B, LIPOSOME) [Concomitant]
  5. CANCIDAS (CASPOFINGIN ACETATE) [Concomitant]

REACTIONS (3)
  - Hypovolaemic shock [None]
  - Haemothorax [None]
  - Post procedural haemorrhage [None]
